FAERS Safety Report 15113350 (Version 1)
Quarter: 2018Q3

REPORT INFORMATION
  Report Type: Spontaneous
  Country: DE (occurrence: DE)
  Receive Date: 20180706
  Receipt Date: 20180706
  Transmission Date: 20181010
  Serious: Yes (Other)
  Sender: FDA-Public Use
  Company Number: DE-TEVA-2018-DE-922083

PATIENT
  Age: 91 Year
  Sex: Male
  Weight: 52 kg

DRUGS (1)
  1. SULFAMETHOXAZOLE W/TRIMETHOPRIM [Suspect]
     Active Substance: SULFAMETHOXAZOLE\TRIMETHOPRIM
     Indication: URINARY TRACT INFECTION
     Dosage: 3840 MILLIGRAM DAILY;
     Route: 048
     Dates: start: 20180426

REACTIONS (9)
  - Delirium [Recovered/Resolved]
  - Agitation [Recovered/Resolved]
  - Illusion [Recovered/Resolved]
  - Psychotic disorder [Recovered/Resolved]
  - Food refusal [Recovered/Resolved]
  - Delusion [Recovered/Resolved]
  - Confusional state [Recovered/Resolved]
  - Refusal of treatment by patient [Recovered/Resolved]
  - Nervousness [Recovered/Resolved]

NARRATIVE: CASE EVENT DATE: 20180427
